FAERS Safety Report 4634396-2 (Version None)
Quarter: 2005Q2

REPORT INFORMATION
  Report Type: 
  Country: None (occurrence: None)
  Receive Date: 20050411
  Receipt Date: 20050325
  Transmission Date: 20051028
  Serious: Yes (Hospitalization)
  Sender: FDA-Public Use
  Company Number: FABR-11052

PATIENT
  Age: 56 Year
  Sex: Male
  Weight: 80 kg

DRUGS (9)
  1. FABRAZYME [Suspect]
     Indication: FABRY'S DISEASE
     Dosage: 0.3 MG/KG Q2WKS IV
     Route: 042
     Dates: start: 20040916
  2. FABRAZYME [Suspect]
     Dosage: 1MG/KG Q2WKS IV
     Route: 042
  3. FABRAZYME [Suspect]
     Indication: FABRY'S DISEASE
     Dosage: 1 MG /KG Q2WKS IV
     Route: 042
     Dates: start: 20040401, end: 20040831
  4. PARACETAMOL [Concomitant]
  5. LOKREN [Concomitant]
  6. VEROGALID [Concomitant]
  7. ANOPYRIN [Concomitant]
  8. ISOMACK [Concomitant]
  9. KALIUM CHLORATUM [Concomitant]

REACTIONS (3)
  - ATRIOVENTRICULAR BLOCK COMPLETE [None]
  - ORGAN FAILURE [None]
  - SYNCOPE [None]
